FAERS Safety Report 9039461 (Version 1)
Quarter: 2013Q1

REPORT INFORMATION
  Report Type: Report from Study
  Country: US (occurrence: US)
  Receive Date: 20130129
  Receipt Date: 20130129
  Transmission Date: 20140127
  Serious: No
  Sender: FDA-Public Use
  Company Number: US-ABBOTT-12P-163-0934782-00

PATIENT
  Age: 67 Year
  Sex: Female

DRUGS (19)
  1. HUMIRA 40 MG/0.8 ML PEN [Suspect]
     Indication: PSORIASIS
     Route: 058
     Dates: start: 20120427
  2. ASPIRIN [Concomitant]
     Indication: PRODUCT USED FOR UNKNOWN INDICATION
  3. CALCIUM [Concomitant]
     Indication: PRODUCT USED FOR UNKNOWN INDICATION
  4. CELEXA [Concomitant]
     Indication: PRODUCT USED FOR UNKNOWN INDICATION
  5. CRESTOR [Concomitant]
     Indication: PRODUCT USED FOR UNKNOWN INDICATION
  6. ESTRADIOL [Concomitant]
     Indication: PRODUCT USED FOR UNKNOWN INDICATION
  7. FLONASE [Concomitant]
     Indication: PRODUCT USED FOR UNKNOWN INDICATION
  8. HCTZ [Concomitant]
     Indication: PRODUCT USED FOR UNKNOWN INDICATION
  9. TOPROL [Concomitant]
     Indication: PRODUCT USED FOR UNKNOWN INDICATION
  10. ZYRTEC [Concomitant]
     Indication: PRODUCT USED FOR UNKNOWN INDICATION
  11. VITAMIN E [Concomitant]
     Indication: PRODUCT USED FOR UNKNOWN INDICATION
  12. TYLENOL [Concomitant]
     Indication: PRODUCT USED FOR UNKNOWN INDICATION
  13. PHOTO THERAPY [Concomitant]
     Indication: PSORIASIS
  14. NORVASC [Concomitant]
     Indication: PRODUCT USED FOR UNKNOWN INDICATION
  15. MOBIC [Concomitant]
     Indication: PRODUCT USED FOR UNKNOWN INDICATION
  16. LEVOXYL [Concomitant]
     Indication: PRODUCT USED FOR UNKNOWN INDICATION
  17. CLOBETASOL [Concomitant]
     Indication: PRODUCT USED FOR UNKNOWN INDICATION
  18. DOVONEX [Concomitant]
     Indication: PRODUCT USED FOR UNKNOWN INDICATION
  19. DESONIDE [Concomitant]
     Indication: PRODUCT USED FOR UNKNOWN INDICATION

REACTIONS (1)
  - Injection site erythema [Recovering/Resolving]
